FAERS Safety Report 7327281-9 (Version None)
Quarter: 2011Q1

REPORT INFORMATION
  Report Type: 
  Country: None (occurrence: None)
  Receive Date: 20110302
  Receipt Date: 20110216
  Transmission Date: 20110831
  Serious: Yes (Hospitalization)
  Sender: FDA-Public Use
  Company Number: US-BAYER-2011-015465

PATIENT
  Age: 48 Year
  Sex: Female

DRUGS (5)
  1. HYDROCHLOROTHIAZIDE [Concomitant]
  2. LANSOPRAZOLE [Interacting]
     Indication: HELICOBACTER INFECTION
     Dosage: 30 MG, BID
  3. CITRACAL BONE DENSITY BUILDER [Suspect]
     Indication: HYPOPARATHYROIDISM
     Dosage: 1800 MG, QD
  4. VITAMIN D [COLECALCIFEROL] [Concomitant]
     Dosage: 1200 IU, QD
  5. NIFEDIPINE [Concomitant]

REACTIONS (4)
  - CONVULSION [None]
  - PARAESTHESIA [None]
  - MUSCLE SPASMS [None]
  - TETANY [None]
